FAERS Safety Report 5957094-1 (Version None)
Quarter: 2008Q4

REPORT INFORMATION
  Report Type: 
  Country: None (occurrence: None)
  Receive Date: 20081118
  Receipt Date: 20081112
  Transmission Date: 20090506
  Serious: Yes (Other)
  Sender: FDA-Public Use
  Company Number: PHHY2008DE24832

PATIENT
  Age: 57 Year
  Sex: Female

DRUGS (2)
  1. VOLTAREN [Suspect]
     Dosage: 50 MG/DAY, FOR ONE WEEK
     Route: 048
     Dates: end: 20070101
  2. DICLOFENAC SODIUM [Suspect]
     Indication: MUSCULOSKELETAL PAIN
     Dosage: 2 ML, TWICE
     Route: 030
     Dates: start: 20080101, end: 20080101

REACTIONS (4)
  - AMNESIA [None]
  - BLOOD CHOLESTEROL INCREASED [None]
  - GLOBAL AMNESIA [None]
  - HIGH DENSITY LIPOPROTEIN INCREASED [None]
